FAERS Safety Report 8677769 (Version 2)
Quarter: 2013Q4

REPORT INFORMATION
  Report Type: Spontaneous
  Country: US (occurrence: US)
  Receive Date: 20120723
  Receipt Date: 20131101
  Transmission Date: 20140711
  Serious: No
  Sender: FDA-Public Use
  Company Number: US-009507513-1207USA005961

PATIENT
  Age: 80 Year
  Sex: Female

DRUGS (3)
  1. JANUVIA [Suspect]
  2. LANTUS [Concomitant]
  3. METFORMIN [Concomitant]

REACTIONS (1)
  - Oedema peripheral [Unknown]
